FAERS Safety Report 13416759 (Version 1)
Quarter: 2017Q2

REPORT INFORMATION
  Report Type: Report from Study
  Country: FR (occurrence: FR)
  Receive Date: 20170407
  Receipt Date: 20170407
  Transmission Date: 20170830
  Serious: Yes (Hospitalization)
  Sender: FDA-Public Use
  Company Number: FR-BAXALTA-2017BLT002832

PATIENT
  Age: 3 Year
  Sex: Female
  Weight: 18.4 kg

DRUGS (13)
  1. ONCASPAR [Suspect]
     Active Substance: PEGASPARGASE
     Indication: ACUTE LYMPHOCYTIC LEUKAEMIA
     Dosage: 288 IU, 1X A DAY
     Route: 042
     Dates: start: 20170313, end: 20170313
  2. HYDROCORTISONE. [Suspect]
     Active Substance: HYDROCORTISONE
     Indication: ACUTE LYMPHOCYTIC LEUKAEMIA
     Dosage: 15 MG, 1X A DAY
     Route: 037
     Dates: start: 20170318, end: 20170318
  3. ESOMEPRAZOLE MAGNESIUM. [Concomitant]
     Active Substance: ESOMEPRAZOLE MAGNESIUM
     Indication: PRODUCT USED FOR UNKNOWN INDICATION
  4. NALBUPHINE HYDROCHLORIDE. [Concomitant]
     Active Substance: NALBUPHINE HYDROCHLORIDE
     Indication: PROCEDURAL PAIN
  5. HYDROXYZINE [Concomitant]
     Active Substance: HYDROXYZINE HYDROCHLORIDE
     Indication: ANXIETY
  6. AMPHOTERICIN B. [Concomitant]
     Active Substance: AMPHOTERICIN B
     Indication: ANTIFUNGAL PROPHYLAXIS
  7. AMOXICILLIN SODIUM, CLAVULANATE POTASSIUM [Concomitant]
     Indication: INFECTION PROPHYLAXIS
  8. METHOTREXATE. [Suspect]
     Active Substance: METHOTREXATE
     Indication: ACUTE LYMPHOCYTIC LEUKAEMIA
     Dosage: 12 MG, 1X A DAY
     Route: 037
     Dates: start: 20170318, end: 20170318
  9. CYTARABINE. [Suspect]
     Active Substance: CYTARABINE
     Indication: ACUTE LYMPHOCYTIC LEUKAEMIA
     Dosage: 30 MG, UNK
     Route: 037
     Dates: start: 20170318, end: 20170318
  10. CLONAZEPAM. [Concomitant]
     Active Substance: CLONAZEPAM
     Indication: NEUROPATHY PERIPHERAL
  11. ANTITHROMBIN III [Concomitant]
     Active Substance: ANTITHROMBIN III HUMAN
     Indication: ANTITHROMBIN III DEFICIENCY
  12. CYCLOPHOSPHAMIDE. [Suspect]
     Active Substance: CYCLOPHOSPHAMIDE
     Indication: ACUTE LYMPHOCYTIC LEUKAEMIA
     Dosage: 700 MG, 1X A DAY
     Route: 042
     Dates: start: 20170316, end: 20170316
  13. CYTARABINE. [Suspect]
     Active Substance: CYTARABINE
     Dosage: 52.5 MG, 1X A DAY
     Route: 042
     Dates: start: 20170318, end: 20170321

REACTIONS (1)
  - Seizure [Recovering/Resolving]

NARRATIVE: CASE EVENT DATE: 20170326
